FAERS Safety Report 8782377 (Version 2)
Quarter: 2012Q4

REPORT INFORMATION
  Report Type: 
  Country: US (occurrence: US)
  Receive Date: 20120913
  Receipt Date: 20121019
  Transmission Date: 20130627
  Serious: Yes (Other)
  Sender: FDA-Public Use
  Company Number: CHPA2012US019547

PATIENT
  Age: 25 Year
  Sex: Female

DRUGS (2)
  1. GAS-X REGULAR STRENGTH CHEWABLE PEPPERMINT [Suspect]
     Indication: ABDOMINAL PAIN LOWER
     Dosage: 1-2 DF, UNK
     Route: 048
     Dates: start: 2010
  2. BEANO [Concomitant]

REACTIONS (3)
  - Iritis [Recovered/Resolved]
  - Drug ineffective for unapproved indication [Unknown]
  - Drug ineffective [Unknown]
